FAERS Safety Report 11940149 (Version 2)
Quarter: 2016Q3

REPORT INFORMATION
  Report Type: Spontaneous
  Country: US (occurrence: US)
  Receive Date: 20160122
  Receipt Date: 20160705
  Transmission Date: 20161109
  Serious: Yes (Hospitalization, Other)
  Sender: FDA-Public Use
  Company Number: US-TEIKOKU PHARMA USA-TPU2016-00042

PATIENT
  Sex: Female
  Weight: 64.01 kg

DRUGS (13)
  1. LIDODERM [Suspect]
     Active Substance: LIDOCAINE
     Indication: MUSCULOSKELETAL PAIN
  2. LIDODERM [Suspect]
     Active Substance: LIDOCAINE
     Indication: PROCEDURAL PAIN
  3. SYNTHROID [Concomitant]
     Active Substance: LEVOTHYROXINE SODIUM
     Indication: THYROIDECTOMY
     Dates: start: 1969
  4. LIDODERM [Suspect]
     Active Substance: LIDOCAINE
     Indication: BACK PAIN
  5. STEROID INJECTION [Suspect]
     Active Substance: UNSPECIFIED INGREDIENT
     Indication: PAIN MANAGEMENT
     Dosage: 180 AND 40MG
     Dates: start: 2005, end: 2013
  6. XANAX [Concomitant]
     Active Substance: ALPRAZOLAM
     Indication: SLEEP DISORDER
  7. PREDNISONE. [Suspect]
     Active Substance: PREDNISONE
     Indication: UPPER RESPIRATORY TRACT INFECTION
  8. LIDODERM [Suspect]
     Active Substance: LIDOCAINE
     Indication: ULNAR NERVE INJURY
     Dates: start: 2009
  9. LIDODERM [Suspect]
     Active Substance: LIDOCAINE
     Indication: PAIN IN EXTREMITY
  10. PREDNISONE. [Suspect]
     Active Substance: PREDNISONE
     Indication: BRONCHITIS
     Dates: start: 201505
  11. CALCIUM D [Concomitant]
     Active Substance: CALCIUM\VITAMIN D
     Indication: HYPOCALCAEMIA
     Dates: start: 1969
  12. LIDODERM [Suspect]
     Active Substance: LIDOCAINE
     Indication: SMALL FIBRE NEUROPATHY
  13. LIDODERM [Suspect]
     Active Substance: LIDOCAINE
     Indication: MUSCLE ATROPHY

REACTIONS (31)
  - Sciatica [Not Recovered/Not Resolved]
  - Retching [Not Recovered/Not Resolved]
  - Oral pain [Not Recovered/Not Resolved]
  - Arthralgia [Not Recovered/Not Resolved]
  - Rotator cuff repair [Unknown]
  - Weight decreased [Not Recovered/Not Resolved]
  - Oversensing [Not Recovered/Not Resolved]
  - Anger [Not Recovered/Not Resolved]
  - Fat tissue decreased [Not Recovered/Not Resolved]
  - Logorrhoea [Not Recovered/Not Resolved]
  - Muscle atrophy [Not Recovered/Not Resolved]
  - Skin atrophy [Not Recovered/Not Resolved]
  - Repetitive speech [Not Recovered/Not Resolved]
  - Cerebral disorder [Not Recovered/Not Resolved]
  - Wound [Not Recovered/Not Resolved]
  - Upper respiratory tract infection [Unknown]
  - Accident [Unknown]
  - Alopecia [Not Recovered/Not Resolved]
  - Bronchitis [Unknown]
  - Herpes simplex [Not Recovered/Not Resolved]
  - Limb injury [Not Recovered/Not Resolved]
  - Tremor [Not Recovered/Not Resolved]
  - Memory impairment [Not Recovered/Not Resolved]
  - Small fibre neuropathy [Not Recovered/Not Resolved]
  - Restlessness [Not Recovered/Not Resolved]
  - Dysphagia [Not Recovered/Not Resolved]
  - Menopause [Not Recovered/Not Resolved]
  - Road traffic accident [Unknown]
  - Incorrect drug administration duration [Not Recovered/Not Resolved]
  - Vision blurred [Not Recovered/Not Resolved]
  - Burning sensation [Not Recovered/Not Resolved]

NARRATIVE: CASE EVENT DATE: 2007
